FAERS Safety Report 23946079 (Version 1)
Quarter: 2024Q2

REPORT INFORMATION
  Report Type: Spontaneous
  Country: US (occurrence: None)
  Receive Date: 20240605
  Receipt Date: 20240605
  Transmission Date: 20240716
  Serious: Yes (Hospitalization)
  Sender: FDA-Public Use
  Company Number: None

PATIENT
  Sex: Male

DRUGS (6)
  1. WINREVAIR [Suspect]
     Active Substance: SOTATERCEPT-CSRK
     Indication: Pulmonary arterial hypertension
     Dosage: OTHER FREQUENCY : ONCE EVERY 3 WEEKS;?
     Route: 058
     Dates: start: 202405
  2. DUPIXENT [Concomitant]
  3. UPTRAVI [Concomitant]
     Active Substance: SELEXIPAG
  4. DUPIXENT [Concomitant]
     Active Substance: DUPILUMAB
  5. VELETRI [Concomitant]
     Active Substance: EPOPROSTENOL
  6. OPSUMIT [Concomitant]
     Active Substance: MACITENTAN

REACTIONS (1)
  - Pneumonia [None]
